FAERS Safety Report 6344757-1 (Version None)
Quarter: 2009Q3

REPORT INFORMATION
  Report Type: 
  Country: None (occurrence: None)
  Receive Date: 20090904
  Receipt Date: 20090820
  Transmission Date: 20100115
  Serious: Yes (Hospitalization)
  Sender: FDA-Public Use
  Company Number: 2009AL003726

PATIENT
  Age: 89 Year
  Sex: Female

DRUGS (18)
  1. DIGOXIN [Suspect]
     Dosage: 0.25MG, DAILY, PO; 0.125MG, DAILY, PO
     Route: 048
     Dates: start: 20030101, end: 20090714
  2. SPIRIVA [Concomitant]
  3. PRAVACHOL [Concomitant]
  4. ASPIRIN [Concomitant]
  5. CIPRO [Concomitant]
  6. FEMARA [Concomitant]
  7. ARCURI [Concomitant]
  8. LUTEIN [Concomitant]
  9. NITROGLYCERIN [Concomitant]
  10. STOOL SOFTENER [Concomitant]
  11. VASOTEC [Concomitant]
  12. VIOXX [Concomitant]
  13. PAXIL [Concomitant]
  14. NITROSTAT [Concomitant]
  15. MAGNESIUM OXIDE [Concomitant]
  16. XANAX [Concomitant]
  17. LOPRESSOR [Concomitant]
  18. AVELOX [Concomitant]

REACTIONS (13)
  - ASTHENIA [None]
  - BLOOD PRESSURE SYSTOLIC DECREASED [None]
  - BRONCHIECTASIS [None]
  - COUGH [None]
  - DYSPNOEA [None]
  - LETHARGY [None]
  - MALAISE [None]
  - METASTASES TO LIVER [None]
  - NAUSEA [None]
  - PLEURAL FIBROSIS [None]
  - SYNCOPE [None]
  - URINARY TRACT INFECTION [None]
  - VOMITING [None]
